FAERS Safety Report 10897156 (Version 2)
Quarter: 2015Q1

REPORT INFORMATION
  Report Type: Spontaneous
  Country: US (occurrence: US)
  Receive Date: 20150309
  Receipt Date: 20150323
  Transmission Date: 20150721
  Serious: No
  Sender: FDA-Public Use
  Company Number: US-PFIZER INC-2015075991

PATIENT
  Age: 29 Year
  Sex: Female

DRUGS (7)
  1. MORPHINE SULFATE. [Suspect]
     Active Substance: MORPHINE SULFATE
  2. CODEINE [Suspect]
     Active Substance: CODEINE
     Indication: MALAISE
     Dosage: UNK
     Dates: end: 1981
  3. CODEINE [Suspect]
     Active Substance: CODEINE
     Indication: COUGH
  4. SKELAXIN [Suspect]
     Active Substance: METAXALONE
     Indication: BACK PAIN
     Dosage: 10 MG, 1X/DAY
     Dates: end: 1996
  5. BENADRYL [Suspect]
     Active Substance: DIPHENHYDRAMINE HYDROCHLORIDE
     Indication: HYPERSENSITIVITY
     Dosage: UNK
     Dates: end: 1997
  6. PHENARGAN PLUS [Suspect]
     Active Substance: ACETAMINOPHEN\PROMETHAZINE HYDROCHLORIDE
     Indication: HYPERSENSITIVITY
     Dosage: UNK
     Dates: end: 2003
  7. ASA [Suspect]
     Active Substance: ASPIRIN
     Indication: HEADACHE
     Dosage: UNK
     Dates: end: 1997

REACTIONS (2)
  - Drug hypersensitivity [Recovered/Resolved]
  - Vomiting [Not Recovered/Not Resolved]

NARRATIVE: CASE EVENT DATE: 1985
